FAERS Safety Report 5925213-9 (Version None)
Quarter: 2008Q3

REPORT INFORMATION
  Report Type: 
  Country: None (occurrence: None)
  Receive Date: 20080909
  Receipt Date: 20070926
  Transmission Date: 20090109
  Serious: Yes (Death, Hospitalization)
  Sender: FDA-Public Use
  Company Number: 163-20785-07081944

PATIENT
  Age: 45 Year
  Sex: Female
  Weight: 79.6 kg

DRUGS (46)
  1. THALOMID [Suspect]
     Indication: OVARIAN CANCER
     Dosage: 200 MG, 4 IN 1 D, ORAL
     Route: 048
     Dates: start: 20070729, end: 20070806
  2. ACETAMINOPHEN (PARACETAMOL) (SUPPOSITORY) [Concomitant]
  3. ACETAMINOPHEN/CODEINE #3 (GALENIC/PARACETAMOL/CODEINE/) (TABLETS) [Concomitant]
  4. ALBUTEROL/IPRATROPIUM (COMBIVENT) [Concomitant]
  5. ALTEPLASE/SODIUM CHLORIDE (ALTEPLASE) [Concomitant]
  6. AZACTAM [Concomitant]
  7. BISACODYL (BISACODYL) (SUPPOSITORY) [Concomitant]
  8. CEFTAZIDIME [Concomitant]
  9. CLONAZEPAM [Concomitant]
  10. COLLAGENASE (COLLAGENASE) (OINTMENT) [Concomitant]
  11. ARANESP [Concomitant]
  12. DEXTROSE/SODIUM CHLORIDE (SOLUTION) [Concomitant]
  13. DIPHENHYDRAMINE (DIPHENHYDRAMINE) (CAPSULES) [Concomitant]
  14. ESTRADIOL (ESTRADIOL) (POULTICE OR PATCH) [Concomitant]
  15. FENTANYL (FENTANYL) (POULTICE OR PATCH) [Concomitant]
  16. FENTANYL CITRATE (FENTANYL CITRATE) (SOLUTION) [Concomitant]
  17. FILGRASTIM (FILGRASTIM) (SOLUTION) [Concomitant]
  18. FUROSEMIDE (FUROSEMDE) (SOLUTION) [Concomitant]
  19. HEPARIN [Concomitant]
  20. HYDROMORPHONE HCL [Concomitant]
  21. HYDROMORPHONE PCA/SODIUM CHLORIDE [Concomitant]
  22. IOTHALAMATE MEGLUMINE 60% [Concomitant]
  23. LEVALBUTEROL HCL [Concomitant]
  24. LEVOFLOXACIN [Concomitant]
  25. IOPERAMIDE (CAPSULES) [Concomitant]
  26. LORAZEPAM (LORAZEPAM) (SOLUTION) [Concomitant]
  27. MILK OF MAGNESIA TAB [Concomitant]
  28. MAGNESIUM SULFATE 2000MG/DEXTROSE 5% 100ML [Concomitant]
  29. METOCLOPRAMIDE (METOCLOPRAMIDE) (SOLUTION) [Concomitant]
  30. METOPROLOL TARTRATE [Concomitant]
  31. MICONAZOLE (MICONAZOLE) (OINTMENT) [Concomitant]
  32. NALOXONE (NALOXONE) (SOLUTION) [Concomitant]
  33. NYSTATIN [Concomitant]
  34. ZOFRAN/DECADRON [Concomitant]
  35. ZOFRAN [Concomitant]
  36. OXYCODONE (OXYCODONE) (CAPSULES) [Concomitant]
  37. NEULASTA [Concomitant]
  38. PYRIDIUM (PHENAZOPYRIDINE HYDROCHLORIDE) [Concomitant]
  39. POTASSIUM (POTASSIUM) [Concomitant]
  40. PHENERGAN (INJECTION) [Concomitant]
  41. ZANTAC/DEXTROSE 5% [Concomitant]
  42. SODIUM CHLORIDE INJ [Concomitant]
  43. SIMETHICONE (DIMETICONE, ACTIVATED) [Concomitant]
  44. HYCAMTIN [Concomitant]
  45. XENADERM (GRANULEX) (OINTMENT) [Concomitant]
  46. AMBIEN [Concomitant]

REACTIONS (1)
  - NEOPLASM PROGRESSION [None]
